FAERS Safety Report 23939789 (Version 1)
Quarter: 2024Q2

REPORT INFORMATION
  Report Type: Spontaneous
  Country: US (occurrence: US)
  Receive Date: 20240605
  Receipt Date: 20240605
  Transmission Date: 20240715
  Serious: No
  Sender: FDA-Public Use
  Company Number: US-BIOGEN-2024BI01266694

PATIENT
  Sex: Female

DRUGS (2)
  1. TECFIDERA [Suspect]
     Active Substance: DIMETHYL FUMARATE
     Indication: Multiple sclerosis
     Dosage: STARTING DOSE
     Route: 050
     Dates: start: 20140711
  2. TECFIDERA [Suspect]
     Active Substance: DIMETHYL FUMARATE
     Dosage: MAINTENANCE DOSE
     Route: 050
     Dates: end: 20140901

REACTIONS (6)
  - Body temperature increased [Unknown]
  - Hallucination [Unknown]
  - Protein bound iodine decreased [Unknown]
  - Fatigue [Unknown]
  - Hypersensitivity [Unknown]
  - Nausea [Unknown]
